FAERS Safety Report 21783288 (Version 1)
Quarter: 2022Q4

REPORT INFORMATION
  Report Type: Spontaneous
  Country: FR (occurrence: FR)
  Receive Date: 20221227
  Receipt Date: 20221227
  Transmission Date: 20230112
  Serious: Yes (Other)
  Sender: FDA-Public Use
  Company Number: FR-SA-2022SA516297

PATIENT
  Age: 57 Year
  Sex: Male

DRUGS (4)
  1. ENOXAPARIN SODIUM [Suspect]
     Active Substance: ENOXAPARIN SODIUM
     Indication: Deep vein thrombosis
     Dosage: 100 IU/KG, Q12H
     Route: 058
  2. ENOXAPARIN SODIUM [Suspect]
     Active Substance: ENOXAPARIN SODIUM
     Indication: Cognitive disorder
     Dosage: 4000 IU, QD
     Route: 058
  3. ENOXAPARIN SODIUM [Suspect]
     Active Substance: ENOXAPARIN SODIUM
     Indication: Hemiparesis
  4. ASPIRIN [Suspect]
     Active Substance: ASPIRIN
     Indication: Deep vein thrombosis
     Dosage: 250 MG, QD
     Route: 042

REACTIONS (5)
  - Haemorrhage intracranial [Recovered/Resolved]
  - Hemiparesis [Recovering/Resolving]
  - Neurologic neglect syndrome [Recovering/Resolving]
  - Hemianopia homonymous [Recovering/Resolving]
  - Cognitive disorder [Recovering/Resolving]
